FAERS Safety Report 9481913 (Version 3)
Quarter: 2013Q4

REPORT INFORMATION
  Report Type: Spontaneous
  Country: US (occurrence: US)
  Receive Date: 20130828
  Receipt Date: 20131007
  Transmission Date: 20140711
  Serious: Yes (Other)
  Sender: FDA-Public Use
  Company Number: US-AMGEN-USASP2013060048

PATIENT
  Age: 36 Year
  Sex: Female
  Weight: 97.51 kg

DRUGS (3)
  1. ENBREL [Suspect]
     Indication: RHEUMATOID ARTHRITIS
     Dosage: 50 MG, 1 X WEEK
     Route: 058
     Dates: start: 20010401
  2. FOLIC ACID [Concomitant]
     Dosage: UNK UNK, QD
     Route: 048
     Dates: start: 19980601, end: 20060101
  3. PRENATAL VITAMINS                  /07499601/ [Concomitant]
     Dosage: UNK UNK, 1 X DAY
     Route: 048
     Dates: start: 19980601, end: 20060101

REACTIONS (4)
  - Caesarean section [Recovered/Resolved]
  - Blood iron decreased [Recovered/Resolved]
  - Blood calcium decreased [Recovered/Resolved]
  - Influenza [Unknown]
